FAERS Safety Report 5140725-6 (Version None)
Quarter: 2006Q4

REPORT INFORMATION
  Report Type: 
  Country: None (occurrence: None)
  Receive Date: 20061025
  Receipt Date: 20061020
  Transmission Date: 20070319
  Serious: Yes (Hospitalization)
  Sender: FDA-Public Use
  Company Number: 148813ISR

PATIENT
  Age: 43 Year
  Sex: Female

DRUGS (1)
  1. COPAXONE [Suspect]
     Indication: MULTIPLE SCLEROSIS
     Dosage: 20 MG (20 MG, 1 IN 1 D)
     Route: 058
     Dates: start: 20060726, end: 20060921

REACTIONS (3)
  - ACUTE HEPATIC FAILURE [None]
  - HEPATOTOXICITY [None]
  - PROTHROMBIN TIME PROLONGED [None]
